FAERS Safety Report 8403134-X (Version None)
Quarter: 2012Q2

REPORT INFORMATION
  Report Type: 
  Country: None (occurrence: None)
  Receive Date: 20120601
  Receipt Date: 20120518
  Transmission Date: 20120825
  Serious: Yes (Hospitalization)
  Sender: FDA-Public Use
  Company Number: US-JNJFOC-20120516676

PATIENT
  Sex: Female
  Weight: 68.22 kg

DRUGS (10)
  1. DURAGESIC-100 [Suspect]
     Route: 062
     Dates: start: 20110101, end: 20110101
  2. DURAGESIC-100 [Suspect]
     Indication: RHEUMATOID ARTHRITIS
     Route: 062
     Dates: start: 20120515
  3. METHADONE HYDROCHLORIDE [Suspect]
     Indication: FIBROMYALGIA
     Route: 065
     Dates: start: 20110101, end: 20120501
  4. AMBIEN [Concomitant]
     Indication: SLEEP DISORDER
     Route: 048
  5. DURAGESIC-100 [Suspect]
     Indication: FIBROMYALGIA
     Route: 062
     Dates: start: 20110101, end: 20110101
  6. PREMARIN [Concomitant]
     Indication: HORMONE REPLACEMENT THERAPY
     Route: 048
  7. DURAGESIC-100 [Suspect]
     Route: 062
     Dates: start: 20120515
  8. METHADONE HYDROCHLORIDE [Suspect]
     Indication: RHEUMATOID ARTHRITIS
     Route: 065
     Dates: start: 20110101, end: 20120501
  9. ZOMIG [Concomitant]
     Indication: MIGRAINE
     Route: 045
  10. SINGULAIR [Concomitant]
     Indication: MULTIPLE ALLERGIES
     Route: 065

REACTIONS (10)
  - BREAKTHROUGH PAIN [None]
  - APPLICATION SITE REACTION [None]
  - RADIAL NERVE PALSY [None]
  - HYPOAESTHESIA [None]
  - MIGRAINE [None]
  - BLOOD PRESSURE INCREASED [None]
  - TINNITUS [None]
  - FATIGUE [None]
  - THERAPEUTIC RESPONSE UNEXPECTED [None]
  - CHOKING [None]
